FAERS Safety Report 7920482-8 (Version None)
Quarter: 2011Q4

REPORT INFORMATION
  Report Type: 
  Country: None (occurrence: None)
  Receive Date: 20111117
  Receipt Date: 20111109
  Transmission Date: 20120403
  Serious: Yes (Other)
  Sender: FDA-Public Use
  Company Number: PHHY2011CA099684

PATIENT

DRUGS (1)
  1. SANDOSTATIN LAR [Suspect]
     Indication: COLORECTAL CANCER METASTATIC
     Dosage: 30 MG EVERY 4 WEEKS
     Route: 030
     Dates: start: 20110815

REACTIONS (2)
  - PERIORBITAL HAEMATOMA [None]
  - FALL [None]
